FAERS Safety Report 9518660 (Version 2)
Quarter: 2013Q4

REPORT INFORMATION
  Report Type: Report from Study
  Country: BR (occurrence: BR)
  Receive Date: 20130912
  Receipt Date: 20131115
  Transmission Date: 20140711
  Serious: Yes (Death, Other)
  Sender: FDA-Public Use
  Company Number: PHHY2013BR100459

PATIENT
  Age: 83 Year
  Sex: Female

DRUGS (6)
  1. ACLASTA [Suspect]
     Indication: OSTEOPOROSIS
     Dosage: 5 MG, UNK
     Route: 030
     Dates: start: 2010
  2. OSTEO BI-FLEX                      /01431201/ [Concomitant]
     Indication: OSTEOARTHRITIS
     Dosage: 2 DF, A DAY
     Route: 048
     Dates: end: 201212
  3. CALTRATE [Concomitant]
     Indication: OSTEOPOROSIS
     Dosage: 2 DF, A DAY
     Route: 048
     Dates: end: 201212
  4. LORAX                                   /BRA/ [Concomitant]
     Indication: INSOMNIA
     Dosage: 1 DF, A DAY
     Route: 048
     Dates: end: 201212
  5. PANTOPRAZOLE [Concomitant]
     Indication: GASTROOESOPHAGEAL REFLUX DISEASE
     Dosage: 1 DF, A DAY
     Route: 048
  6. MOTILIUM ^BYK GULDEN^ [Concomitant]
     Indication: GASTROOESOPHAGEAL REFLUX DISEASE
     Dosage: 2 DF, A DAY
     Route: 048
     Dates: end: 201212

REACTIONS (8)
  - Cardiac arrest [Fatal]
  - Multi-organ failure [Fatal]
  - Dementia Alzheimer^s type [Unknown]
  - Cognitive disorder [Unknown]
  - Neoplasm malignant [Unknown]
  - Spinal fracture [Unknown]
  - Respiratory failure [Unknown]
  - Incorrect route of drug administration [Unknown]
